FAERS Safety Report 8276630 (Version 2)
Quarter: 2014Q1

REPORT INFORMATION
  Report Type: Spontaneous
  Country: US (occurrence: US)
  Receive Date: 20111206
  Receipt Date: 20140102
  Transmission Date: 20141002
  Serious: Yes (Hospitalization)
  Sender: FDA-Public Use
  Company Number: US-GLAXOSMITHKLINE-A0903078A

PATIENT
  Age: 61 Year
  Sex: Female
  Weight: 66.4 kg

DRUGS (7)
  1. AVANDIA [Suspect]
     Indication: DIABETES MELLITUS
     Dosage: 8MG PER DAY
     Route: 048
     Dates: start: 200203, end: 200407
  2. AVANDAMET [Suspect]
     Indication: DIABETES MELLITUS
     Route: 048
     Dates: start: 2004, end: 2009
  3. ALPRAZOLAM [Concomitant]
  4. VYTORIN [Concomitant]
  5. GLIPIZIDE [Concomitant]
  6. PREVACID [Concomitant]
  7. EFFEXOR XR [Concomitant]

REACTIONS (4)
  - Cardiac failure congestive [Not Recovered/Not Resolved]
  - Ischaemic cardiomyopathy [Unknown]
  - Coronary artery disease [Unknown]
  - Cardiovascular disorder [Unknown]
